FAERS Safety Report 5408480-X (Version None)
Quarter: 2007Q3

REPORT INFORMATION
  Report Type: 
  Country: None (occurrence: None)
  Receive Date: 20070808
  Receipt Date: 20070801
  Transmission Date: 20080115
  Serious: Yes (Hospitalization)
  Sender: FDA-Public Use
  Company Number: JP-ASTRAZENECA-2007AP04714

PATIENT
  Age: 72 Year
  Sex: Male

DRUGS (3)
  1. IRESSA [Suspect]
     Indication: LUNG ADENOCARCINOMA
     Route: 048
     Dates: start: 20070604
  2. MOBIC [Concomitant]
     Route: 048
  3. CYTOTEC [Concomitant]
     Route: 048

REACTIONS (1)
  - PNEUMOMEDIASTINUM [None]
